FAERS Safety Report 14073441 (Version 1)
Quarter: 2017Q4

REPORT INFORMATION
  Report Type: Spontaneous
  Country: US (occurrence: US)
  Receive Date: 20171011
  Receipt Date: 20171011
  Transmission Date: 20180321
  Serious: No
  Sender: FDA-Public Use
  Company Number: None

PATIENT
  Age: 46 Year
  Sex: Female
  Weight: 65.7 kg

DRUGS (15)
  1. ECONAZOLE NITRATE. [Concomitant]
     Active Substance: ECONAZOLE NITRATE
  2. VITAMIN D [Concomitant]
     Active Substance: CHOLECALCIFEROL
  3. CREON [Suspect]
     Active Substance: PANCRELIPASE AMYLASE\PANCRELIPASE LIPASE\PANCRELIPASE PROTEASE
     Indication: PANCREATIC FAILURE
     Dosage: ?          OTHER STRENGTH:LIPASE UNITS;QUANTITY:1 CAPSULE(S);?
     Route: 048
     Dates: start: 20171005, end: 20171010
  4. ALLIMAX (ALLICIN EXTRACT - GARLIC) [Concomitant]
  5. MAGNESIUM GLYCINATE [Concomitant]
     Active Substance: MAGNESIUM GLYCINATE
  6. LAURICIDIN [Concomitant]
  7. TAURINE [Concomitant]
     Active Substance: TAURINE
  8. B-COMPLEX (PHOSPHORYLATED) [Concomitant]
  9. MONOLAURIN ARABINOGALACTAN POWDER (EASTERN LARCH HEARTWOOD) [Concomitant]
  10. TRUBIFIDO (BIFUDOBACTERIUM LACTIS, BIFIDUM, BREVE) [Concomitant]
  11. SACCHAROMYCES BOULARDII [Concomitant]
     Active Substance: SACCHAROMYCES CEREVISIAE
  12. ASCORBIC ACID. [Concomitant]
     Active Substance: ASCORBIC ACID
  13. VITAMIN K [Concomitant]
     Active Substance: PHYTONADIONE
  14. N-ACETYL-L-CYSTEINE [Concomitant]
     Active Substance: ACETYLCYSTEINE
  15. DIGESTIVE ENZYMES (PANCREATIN AND OX BILE) [Concomitant]

REACTIONS (10)
  - Arthropod bite [None]
  - Proctalgia [None]
  - Anxiety [None]
  - Pruritus [None]
  - Anal pruritus [None]
  - Oral herpes [None]
  - Constipation [None]
  - Anorectal discomfort [None]
  - Condition aggravated [None]
  - Rash [None]

NARRATIVE: CASE EVENT DATE: 20171009
